FAERS Safety Report 24889993 (Version 1)
Quarter: 2025Q1

REPORT INFORMATION
  Report Type: Spontaneous
  Country: US (occurrence: None)
  Receive Date: 20250124
  Receipt Date: 20250124
  Transmission Date: 20250409
  Serious: Yes (Disabling, Other)
  Sender: FDA-CTU
  Company Number: None

PATIENT
  Age: 36 Year
  Sex: Female

DRUGS (2)
  1. HYDROXYCHLOROQUINE [Suspect]
     Active Substance: HYDROXYCHLOROQUINE
     Indication: Arthritis
     Dosage: OTHER QUANTITY : 2 TABLET(S);?FREQUENCY : AT BEDTIME;?
     Route: 048
  2. PREDNISONE [Concomitant]
     Active Substance: PREDNISONE

REACTIONS (10)
  - Feeling abnormal [None]
  - Cerebral disorder [None]
  - Movement disorder [None]
  - Near death experience [None]
  - Fear [None]
  - Head discomfort [None]
  - Autoimmune disorder [None]
  - Hypovitaminosis [None]
  - Abdominal discomfort [None]
  - Weight decreased [None]

NARRATIVE: CASE EVENT DATE: 20240831
